FAERS Safety Report 19830651 (Version 1)
Quarter: 2021Q3

REPORT INFORMATION
  Report Type: Spontaneous
  Country: JP (occurrence: JP)
  Receive Date: 20210915
  Receipt Date: 20210915
  Transmission Date: 20211014
  Serious: Yes (Other)
  Sender: FDA-Public Use
  Company Number: JP-EXELIXIS-CABO-21044102

PATIENT
  Age: 70 Year
  Sex: Male

DRUGS (1)
  1. CABOMETYX [Suspect]
     Active Substance: CABOZANTINIB S-MALATE
     Indication: HEPATIC CANCER
     Dosage: 60 MILLIGRAM, QD
     Route: 048

REACTIONS (6)
  - Rash [Unknown]
  - Malaise [Unknown]
  - Hepatitis [Unknown]
  - Hypertension [Unknown]
  - Hypothyroidism [Unknown]
  - Liver disorder [Unknown]
